FAERS Safety Report 25848123 (Version 1)
Quarter: 2025Q3

REPORT INFORMATION
  Report Type: Spontaneous
  Country: US (occurrence: None)
  Receive Date: 20250925
  Receipt Date: 20250925
  Transmission Date: 20251020
  Serious: Yes (Other)
  Sender: FDA-CTU
  Company Number: None

PATIENT
  Age: 19 Year
  Sex: Female

DRUGS (3)
  1. CAPLYTA [Suspect]
     Active Substance: LUMATEPERONE
  2. RINVOQ [Suspect]
     Active Substance: UPADACITINIB
  3. REMICADE [Suspect]
     Active Substance: INFLIXIMAB

REACTIONS (2)
  - Fatigue [None]
  - Somnambulism [None]
